FAERS Safety Report 8311865-5 (Version None)
Quarter: 2012Q1

REPORT INFORMATION
  Report Type: 
  Country: None (occurrence: None)
  Receive Date: 20120315
  Receipt Date: 20110524
  Transmission Date: 20120608
  Serious: No
  Sender: FDA-Public Use
  Company Number: PHHY2011US45562

PATIENT
  Age: 40 Year
  Sex: Male
  Weight: 103.4 kg

DRUGS (1)
  1. GILENYA [Suspect]
     Indication: MULTIPLE SCLEROSIS
     Dosage: 0.5 MG, QD, ORAL
     Route: 048
     Dates: start: 20110520

REACTIONS (4)
  - HYPERSOMNIA [None]
  - INFLUENZA LIKE ILLNESS [None]
  - FATIGUE [None]
  - PAIN [None]
